FAERS Safety Report 18357123 (Version 1)
Quarter: 2020Q4

REPORT INFORMATION
  Report Type: Spontaneous
  Country: US (occurrence: US)
  Receive Date: 20201007
  Receipt Date: 20201007
  Transmission Date: 20210114
  Serious: Yes (Other)
  Sender: FDA-Public Use
  Company Number: US-AMGEN-USASP2020159797

PATIENT
  Age: 66 Year
  Sex: Male

DRUGS (11)
  1. 5-FLUOROURACIL [FLUOROURACIL] [Concomitant]
     Active Substance: FLUOROURACIL
     Indication: METASTASES TO LYMPH NODES
  2. OXALIPLATIN. [Concomitant]
     Active Substance: OXALIPLATIN
     Indication: METASTASES TO LYMPH NODES
  3. LIDOCAINE. [Concomitant]
     Active Substance: LIDOCAINE
     Indication: PRURITUS
  4. TRASTUZUMAB. [Suspect]
     Active Substance: TRASTUZUMAB
     Indication: OESOPHAGEAL ADENOCARCINOMA
     Dosage: UNK
     Route: 065
  5. 5-FLUOROURACIL [FLUOROURACIL] [Concomitant]
     Active Substance: FLUOROURACIL
     Indication: OESOPHAGEAL ADENOCARCINOMA
  6. OXALIPLATIN. [Concomitant]
     Active Substance: OXALIPLATIN
     Indication: INTESTINAL METASTASIS
  7. 5-FLUOROURACIL [FLUOROURACIL] [Concomitant]
     Active Substance: FLUOROURACIL
     Indication: INTESTINAL METASTASIS
  8. OXALIPLATIN. [Concomitant]
     Active Substance: OXALIPLATIN
     Indication: OESOPHAGEAL ADENOCARCINOMA
  9. FOLINIC ACID [Concomitant]
     Active Substance: LEUCOVORIN
     Indication: OESOPHAGEAL ADENOCARCINOMA
  10. FOLINIC ACID [Concomitant]
     Active Substance: LEUCOVORIN
     Indication: INTESTINAL METASTASIS
  11. FOLINIC ACID [Concomitant]
     Active Substance: LEUCOVORIN
     Indication: METASTASES TO LYMPH NODES

REACTIONS (1)
  - Oesophageal adenocarcinoma [Unknown]
